FAERS Safety Report 9793346 (Version 3)
Quarter: 2014Q1

REPORT INFORMATION
  Report Type: Spontaneous
  Country: US (occurrence: US)
  Receive Date: 20140102
  Receipt Date: 20140227
  Transmission Date: 20141002
  Serious: Yes (Hospitalization, Other)
  Sender: FDA-Public Use
  Company Number: US-PFIZER INC-2013374268

PATIENT
  Age: 66 Year
  Sex: Female
  Weight: 78.01 kg

DRUGS (1)
  1. CELEBREX [Suspect]
     Indication: MUSCULOSKELETAL PAIN
     Dosage: 200 MG, 1X/DAY
     Dates: start: 201306

REACTIONS (2)
  - Breast cancer stage I [Unknown]
  - Arthropathy [Unknown]
